FAERS Safety Report 4333833-0 (Version None)
Quarter: 2004Q2

REPORT INFORMATION
  Report Type: 
  Country: None (occurrence: None)
  Receive Date: 20040406
  Receipt Date: 20040406
  Transmission Date: 20050107
  Serious: Yes (Hospitalization)
  Sender: FDA-Public Use
  Company Number: None

PATIENT
  Age: 77 Year
  Sex: Male
  Weight: 36.2878 kg

DRUGS (6)
  1. COUMADIN [Suspect]
     Indication: ATRIAL FIBRILLATION
     Dosage: 6 MG/4 MG 2X/5X WEEKS ORAL
     Route: 048
     Dates: start: 20020501, end: 20031219
  2. ASCORBIC ACID [Concomitant]
  3. FESO4 [Concomitant]
  4. SPIRONOLACTONE [Concomitant]
  5. TERAZOSIN HCL [Concomitant]
  6. VERAPAMIL [Concomitant]

REACTIONS (2)
  - HAEMORRHAGIC STROKE [None]
  - INTERNATIONAL NORMALISED RATIO INCREASED [None]
